FAERS Safety Report 5156041-2 (Version None)
Quarter: 2006Q4

REPORT INFORMATION
  Report Type: 
  Country: None (occurrence: None)
  Receive Date: 20061122
  Receipt Date: 20061025
  Transmission Date: 20070319
  Serious: Yes (Life-Threatening)
  Sender: FDA-Public Use
  Company Number: JP-NOVOPROD-258017

PATIENT
  Age: 52 Year
  Sex: Male
  Weight: 58 kg

DRUGS (10)
  1. NOVOSEVEN [Suspect]
     Indication: HAEMOPHILIA A WITH ANTI FACTOR VIII
     Dosage: 4.2 MG, QID
     Route: 042
     Dates: start: 20061017, end: 20061017
  2. NOVOSEVEN [Suspect]
     Dosage: 4.8 MG, BID
     Dates: start: 20061026, end: 20061026
  3. FEIBA                              /00286701/ [Suspect]
     Indication: HAEMORRHAGE
     Dosage: 6000 IU, QD
     Route: 042
     Dates: start: 20061013, end: 20061017
  4. TRANSAMIN [Suspect]
     Dosage: 2000 MG, QD
     Dates: start: 20061013, end: 20061017
  5. NEORAL [Suspect]
     Dosage: 200-300 MG
     Route: 048
     Dates: start: 20060819, end: 20061017
  6. PREDONINE                          /00016201/ [Concomitant]
     Dosage: 15-40 MG, QD
     Route: 048
     Dates: start: 20060819
  7. PARIET [Concomitant]
     Dosage: 20 MG, UNK
     Route: 048
     Dates: start: 20060819
  8. SANMEL HEXAL [Concomitant]
     Dosage: 40 ML, QD
     Route: 048
     Dates: start: 20061013, end: 20061017
  9. THROMBIN [Concomitant]
     Dosage: 20000 U, QD
     Dates: start: 20061013, end: 20061017
  10. THROMBIN [Concomitant]
     Dates: start: 20061026

REACTIONS (3)
  - HAEMOLYTIC URAEMIC SYNDROME [None]
  - RENAL VESSEL DISORDER [None]
  - THROMBOSIS [None]
